FAERS Safety Report 8353042-8 (Version None)
Quarter: 2012Q2

REPORT INFORMATION
  Report Type: 
  Country: None (occurrence: None)
  Receive Date: 20120511
  Receipt Date: 20120502
  Transmission Date: 20120825
  Serious: Yes (Other)
  Sender: FDA-Public Use
  Company Number: US-ASTRAZENECA-2011SE61972

PATIENT
  Age: 54 Year
  Sex: Female

DRUGS (1)
  1. NEXIUM [Suspect]
     Route: 048

REACTIONS (6)
  - MALAISE [None]
  - APHAGIA [None]
  - VOMITING [None]
  - INTENTIONAL DRUG MISUSE [None]
  - HAEMORRHAGE [None]
  - BARRETT'S OESOPHAGUS [None]
